FAERS Safety Report 20812160 (Version 1)
Quarter: 2022Q2

REPORT INFORMATION
  Report Type: Spontaneous
  Country: AU (occurrence: AU)
  Receive Date: 20220511
  Receipt Date: 20220511
  Transmission Date: 20220721
  Serious: Yes (Other)
  Sender: FDA-Public Use
  Company Number: AU-ALK-ABELLO A/S-2022AA001252

PATIENT

DRUGS (1)
  1. ACARIZAX [Suspect]
     Active Substance: DERMATOPHAGOIDES FARINAE\DERMATOPHAGOIDES PTERONYSSINUS
     Indication: Product used for unknown indication

REACTIONS (5)
  - Fatigue [Recovering/Resolving]
  - Hypersensitivity [Recovered/Resolved]
  - Myalgia [Recovering/Resolving]
  - Night sweats [Recovering/Resolving]
  - Sleep apnoea syndrome [Recovering/Resolving]

NARRATIVE: CASE EVENT DATE: 20200218
